FAERS Safety Report 18393965 (Version 2)
Quarter: 2020Q4

REPORT INFORMATION
  Report Type: Spontaneous
  Country: US (occurrence: US)
  Receive Date: 20201016
  Receipt Date: 20201021
  Transmission Date: 20210114
  Serious: No
  Sender: FDA-Public Use
  Company Number: NVSC2020US274274

PATIENT
  Sex: Female

DRUGS (1)
  1. ESTRADIOL. [Suspect]
     Active Substance: ESTRADIOL
     Indication: HYSTERECTOMY
     Dosage: UNK, CHANGED WEEKLY
     Route: 065

REACTIONS (5)
  - Application site pain [Unknown]
  - Weight decreased [Unknown]
  - Rash [Unknown]
  - Hot flush [Unknown]
  - Product quality issue [Unknown]
